FAERS Safety Report 7540660-X (Version None)
Quarter: 2011Q2

REPORT INFORMATION
  Report Type: 
  Country: None (occurrence: None)
  Receive Date: 20110610
  Receipt Date: 20110608
  Transmission Date: 20111010
  Serious: Yes (Death)
  Sender: FDA-Public Use
  Company Number: PHHY2011GB50323

PATIENT

DRUGS (2)
  1. TREOSULFAN [Concomitant]
     Dosage: 42 G/M2
  2. FLUDARABINE PHOSPHATE [Suspect]
     Indication: AUTOIMMUNE LYMPHOPROLIFERATIVE SYNDROME

REACTIONS (2)
  - MYELODYSPLASTIC SYNDROME [None]
  - ACUTE MYELOID LEUKAEMIA [None]
